FAERS Safety Report 7300834-X (Version None)
Quarter: 2011Q1

REPORT INFORMATION
  Report Type: 
  Country: None (occurrence: None)
  Receive Date: 20110103
  Receipt Date: 20091231
  Transmission Date: 20110831
  Serious: Yes (Life-Threatening, Hospitalization)
  Sender: FDA-Public Use
  Company Number: US-003877

PATIENT
  Age: 42 Year
  Sex: Male

DRUGS (11)
  1. COCAINE (COCAINE) [Concomitant]
  2. CELEXA [Concomitant]
  3. PULMICORT [Concomitant]
  4. MULTIHANCE [Suspect]
     Indication: PERONEAL NERVE PALSY
     Dosage: 15ML ONCE INTRAVENOUS
     Route: 042
     Dates: start: 20091229, end: 20091229
  5. MULTIHANCE [Suspect]
     Indication: NUCLEAR MAGNETIC RESONANCE IMAGING
     Dosage: 15ML ONCE INTRAVENOUS
     Route: 042
     Dates: start: 20091229, end: 20091229
  6. VENTOLIN [Concomitant]
  7. NORCO [Concomitant]
  8. ALBUTEROL [Concomitant]
  9. NASONEX [Concomitant]
  10. DUONEB [Concomitant]
  11. MIRALAX [Concomitant]

REACTIONS (1)
  - ANAPHYLACTIC REACTION [None]
